FAERS Safety Report 7768135-3 (Version None)
Quarter: 2011Q3

REPORT INFORMATION
  Report Type: 
  Country: None (occurrence: None)
  Receive Date: 20110922
  Receipt Date: 20110908
  Transmission Date: 20111222
  Serious: Yes (Hospitalization)
  Sender: FDA-Public Use
  Company Number: BR-ACTELION-A-CH2011-51118

PATIENT
  Sex: Female
  Weight: 60 kg

DRUGS (3)
  1. TRACLEER [Suspect]
     Dosage: 62.5 MG, BID
     Route: 048
     Dates: start: 20061220
  2. TRACLEER [Suspect]
     Indication: PULMONARY ARTERIAL HYPERTENSION
     Dosage: 125 MG, BID
     Route: 048
  3. WARFARIN SODIUM [Concomitant]
     Dosage: UNK
     Dates: start: 20040101

REACTIONS (6)
  - CARDIAC FAILURE CONGESTIVE [None]
  - TRANSAMINASES INCREASED [None]
  - INTERNATIONAL NORMALISED RATIO ABNORMAL [None]
  - BIOPSY LIVER [None]
  - BLOOD BILIRUBIN INCREASED [None]
  - HEPATIC CONGESTION [None]
